FAERS Safety Report 15986666 (Version 1)
Quarter: 2019Q1

REPORT INFORMATION
  Report Type: Spontaneous
  Country: US (occurrence: US)
  Receive Date: 20190220
  Receipt Date: 20190220
  Transmission Date: 20190418
  Serious: No
  Sender: FDA-Public Use
  Company Number: US-SUNOVION-2019SUN000526

PATIENT
  Sex: Female
  Weight: 80.73 kg

DRUGS (3)
  1. LATUDA [Suspect]
     Active Substance: LURASIDONE HYDROCHLORIDE
     Dosage: 120 MG, QD
     Route: 048
     Dates: end: 201902
  2. VRAYLAR [Concomitant]
     Active Substance: CARIPRAZINE
     Indication: BIPOLAR DISORDER
     Dosage: 1.5 MG
  3. LATUDA [Suspect]
     Active Substance: LURASIDONE HYDROCHLORIDE
     Indication: BIPOLAR DISORDER
     Dosage: UNK
     Route: 048

REACTIONS (6)
  - Tachyphrenia [Not Recovered/Not Resolved]
  - Depression [Not Recovered/Not Resolved]
  - Insomnia [Not Recovered/Not Resolved]
  - Mania [Not Recovered/Not Resolved]
  - Product dose omission [Unknown]
  - Feeling abnormal [Not Recovered/Not Resolved]
